FAERS Safety Report 18742178 (Version 1)
Quarter: 2021Q1

REPORT INFORMATION
  Report Type: Spontaneous
  Country: US (occurrence: US)
  Receive Date: 20210114
  Receipt Date: 20210114
  Transmission Date: 20210419
  Serious: Yes (Death, Hospitalization)
  Sender: FDA-Public Use
  Company Number: US-PFIZER INC-2021018091

PATIENT
  Age: 24 Year
  Sex: Male

DRUGS (4)
  1. SODIUM NITRITE [Suspect]
     Active Substance: SODIUM NITRITE
     Dosage: UNK
     Route: 065
  2. SODIUM NITRITE [Suspect]
     Active Substance: SODIUM NITRITE
     Dosage: UNK (INGESTION)
     Route: 048
  3. METOCLOPRAMIDE HCL [Suspect]
     Active Substance: METOCLOPRAMIDE HYDROCHLORIDE
     Dosage: UNK
     Route: 065
  4. METOCLOPRAMIDE HCL [Suspect]
     Active Substance: METOCLOPRAMIDE HYDROCHLORIDE
     Dosage: UNK (INGESTION)
     Route: 048

REACTIONS (3)
  - Respiratory arrest [Fatal]
  - Completed suicide [Fatal]
  - Cardiac arrest [Fatal]

NARRATIVE: CASE EVENT DATE: 2019
